FAERS Safety Report 6175775-4 (Version None)
Quarter: 2009Q2

REPORT INFORMATION
  Report Type: 
  Country: None (occurrence: None)
  Receive Date: 20090501
  Receipt Date: 20090424
  Transmission Date: 20091009
  Serious: Yes (Death)
  Sender: FDA-Public Use
  Company Number: US-AVENTIS-200913573US

PATIENT
  Age: 81 Year
  Sex: Female

DRUGS (1)
  1. LOVENOX [Suspect]

REACTIONS (1)
  - DEATH [None]
